FAERS Safety Report 5937057-2 (Version None)
Quarter: 2008Q4

REPORT INFORMATION
  Report Type: 
  Country: None (occurrence: None)
  Receive Date: 20081031
  Receipt Date: 20081027
  Transmission Date: 20090506
  Serious: Yes (Life-Threatening, Hospitalization)
  Sender: FDA-Public Use
  Company Number: CA-BAYER-200410082BCA

PATIENT
  Age: 68 Year
  Sex: Female

DRUGS (16)
  1. CIPRO [Suspect]
     Indication: URINARY TRACT INFECTION
     Dosage: TOTAL DAILY DOSE: 1000 MG
     Route: 048
     Dates: start: 20021122, end: 20021122
  2. FUROSEMIDE [Concomitant]
     Indication: CARDIAC FAILURE CONGESTIVE
  3. LISINOPRIL [Concomitant]
     Indication: CARDIAC FAILURE CONGESTIVE
  4. AMIODARONE HCL [Concomitant]
     Indication: ATRIAL FIBRILLATION
     Dosage: TOTAL DAILY DOSE: 800 MG
     Route: 048
  5. DIGOXIN [Concomitant]
     Indication: ATRIAL FIBRILLATION
     Route: 048
  6. WARFARIN SODIUM [Concomitant]
     Indication: ATRIAL FIBRILLATION
  7. ACCUPRIL [Concomitant]
     Indication: DRUG USE FOR UNKNOWN INDICATION
     Route: 065
  8. AMLODIPINE [Concomitant]
     Indication: DRUG USE FOR UNKNOWN INDICATION
     Route: 048
  9. ATENOLOL [Concomitant]
     Indication: DRUG USE FOR UNKNOWN INDICATION
     Route: 065
  10. FERROUS GLUCONATE [Concomitant]
     Indication: DRUG USE FOR UNKNOWN INDICATION
     Route: 065
  11. FLU VACCINE [Concomitant]
     Indication: DRUG USE FOR UNKNOWN INDICATION
     Route: 065
  12. HYOSCINE [Concomitant]
     Indication: DRUG USE FOR UNKNOWN INDICATION
     Route: 065
  13. INDAPAMIDE [Concomitant]
     Indication: DRUG USE FOR UNKNOWN INDICATION
     Route: 048
  14. LASIX [Concomitant]
     Indication: DRUG USE FOR UNKNOWN INDICATION
     Route: 065
  15. OMEPRAZOLE [Concomitant]
     Indication: DRUG USE FOR UNKNOWN INDICATION
     Route: 065
  16. RAMIPRIL [Concomitant]
     Indication: DRUG USE FOR UNKNOWN INDICATION
     Route: 048

REACTIONS (3)
  - ELECTROCARDIOGRAM QT PROLONGED [None]
  - TORSADE DE POINTES [None]
  - VENTRICULAR EXTRASYSTOLES [None]
